FAERS Safety Report 24438408 (Version 1)
Quarter: 2024Q4

REPORT INFORMATION
  Report Type: Spontaneous
  Country: US (occurrence: US)
  Receive Date: 20241015
  Receipt Date: 20241015
  Transmission Date: 20250114
  Serious: No
  Sender: KARYOPHARM THERAPEUTICS
  Company Number: US-KARYOPHARM-2024KPT001628

PATIENT

DRUGS (20)
  1. XPOVIO [Suspect]
     Active Substance: SELINEXOR
     Indication: Acute megakaryocytic leukaemia
     Dosage: 20 MG, ONCE ON DAY 1,3,8,10,15 AND 17 EVERY 28 DAY
     Route: 048
  2. ACYCLOVIR [Concomitant]
     Active Substance: ACYCLOVIR
  3. ALBUTEROL SULFATE [Concomitant]
     Active Substance: ALBUTEROL SULFATE
  4. ALLOPURINOL [Concomitant]
     Active Substance: ALLOPURINOL
  5. KATERZIA [Concomitant]
     Active Substance: AMLODIPINE BENZOATE
  6. CEFEPIME [Concomitant]
     Active Substance: CEFEPIME HYDROCHLORIDE
  7. CRESEMBA [Concomitant]
     Active Substance: ISAVUCONAZONIUM SULFATE
  8. ENALAPRIL [Concomitant]
     Active Substance: ENALAPRIL
  9. FAMOTIDINE [Concomitant]
     Active Substance: FAMOTIDINE
  10. FLOVENT [Concomitant]
     Active Substance: FLUTICASONE PROPIONATE
  11. ISRADIPINE [Concomitant]
     Active Substance: ISRADIPINE
  12. LIDOCAINE\PRILOCAINE [Concomitant]
     Active Substance: LIDOCAINE\PRILOCAINE
  13. MORPHINE [Concomitant]
     Active Substance: MORPHINE
  14. ONDANSETRON [Concomitant]
     Active Substance: ONDANSETRON
  15. PREDNISONE [Concomitant]
     Active Substance: PREDNISONE
  16. TACROLIMUS [Concomitant]
     Active Substance: TACROLIMUS
  17. TRIAMCINOLONE [Concomitant]
     Active Substance: TRIAMCINOLONE
  18. VANCOMYCIN [Concomitant]
     Active Substance: VANCOMYCIN
  19. VENCLEXTA [Concomitant]
     Active Substance: VENETOCLAX
  20. AMLODIPINE [Concomitant]
     Active Substance: AMLODIPINE BESYLATE

REACTIONS (3)
  - Off label use [Unknown]
  - Off label use [Unknown]
  - No adverse event [Unknown]
